FAERS Safety Report 14607229 (Version 1)
Quarter: 2018Q1

REPORT INFORMATION
  Report Type: Spontaneous
  Country: US (occurrence: US)
  Receive Date: 20180306
  Receipt Date: 20180306
  Transmission Date: 20180509
  Serious: Yes (Hospitalization)
  Sender: FDA-Public Use
  Company Number: None

PATIENT
  Age: 66 Year
  Sex: Male
  Weight: 100 kg

DRUGS (14)
  1. NEURONTIN [Concomitant]
     Active Substance: GABAPENTIN
  2. HUMALOG [Concomitant]
     Active Substance: INSULIN LISPRO
  3. DUONEB [Concomitant]
     Active Substance: ALBUTEROL SULFATE\IPRATROPIUM BROMIDE
  4. NS [Concomitant]
     Active Substance: SODIUM CHLORIDE
  5. HYDROMORPHONE PCA [Suspect]
     Active Substance: HYDROMORPHONE
     Indication: LUNG LOBECTOMY
     Dosage: 10MG/50ML (0.2MG/ML) PCA INFUSION?RECENT
  6. ECOTRIN [Concomitant]
     Active Substance: ASPIRIN
  7. APAP [Concomitant]
     Active Substance: ACETAMINOPHEN
  8. LACTATED RINGERS SOLUTION [Concomitant]
     Active Substance: CALCIUM CHLORIDE\POTASSIUM CHLORIDE\SODIUM CHLORIDE\SODIUM LACTATE
  9. LOVENOX [Concomitant]
     Active Substance: ENOXAPARIN SODIUM
  10. COLACE [Concomitant]
     Active Substance: DOCUSATE SODIUM
  11. PEPCID [Concomitant]
     Active Substance: FAMOTIDINE
  12. HYDROMORPHONE PCA [Suspect]
     Active Substance: HYDROMORPHONE
     Indication: POSTOPERATIVE ANALGESIA
     Dosage: 10MG/50ML (0.2MG/ML) PCA INFUSION?RECENT
  13. REQUIP [Concomitant]
     Active Substance: ROPINIROLE HYDROCHLORIDE
  14. ANCEF [Concomitant]
     Active Substance: CEFAZOLIN SODIUM

REACTIONS (4)
  - Hypotension [None]
  - Tachycardia [None]
  - Mental status changes [None]
  - Hyperhidrosis [None]

NARRATIVE: CASE EVENT DATE: 20171117
